FAERS Safety Report 8491486 (Version 2)
Quarter: 2013Q3

REPORT INFORMATION
  Report Type: Spontaneous
  Country: US (occurrence: None)
  Receive Date: 20120314
  Receipt Date: 20130724
  Transmission Date: 20140515
  Serious: Yes (Other)
  Sender: FDA-Public Use
  Company Number: PHHY2011US60614

PATIENT
  Sex: 0

DRUGS (1)
  1. FANAPT [Suspect]

REACTIONS (1)
  - Orthostatic hypertension [None]
